FAERS Safety Report 18193554 (Version 1)
Quarter: 2020Q3

REPORT INFORMATION
  Report Type: Spontaneous
  Country: FR (occurrence: FR)
  Receive Date: 20200825
  Receipt Date: 20200825
  Transmission Date: 20201103
  Serious: Yes (Hospitalization)
  Sender: FDA-Public Use
  Company Number: FR-PFIZER INC-2020325211

PATIENT
  Age: 65 Year
  Sex: Male
  Weight: 69.5 kg

DRUGS (13)
  1. CARBOPLATIN HOSPIRA [Suspect]
     Active Substance: CARBOPLATIN
     Indication: BRONCHIAL CARCINOMA
     Dosage: 485 MG, 1X/DAY
     Route: 041
     Dates: start: 20200629, end: 20200629
  2. ALIMTA [Suspect]
     Active Substance: PEMETREXED DISODIUM
     Indication: BRONCHIAL CARCINOMA
     Dosage: 915 MG, CYCLIC
     Route: 041
     Dates: start: 20200629, end: 20200629
  3. ZOPHREN [Concomitant]
     Active Substance: ONDANSETRON
     Dosage: UNK
  4. EMEND [Concomitant]
     Active Substance: APREPITANT
     Dosage: UNK
  5. PANTOPRAZOLE [Concomitant]
     Active Substance: PANTOPRAZOLE
     Dosage: UNK
  6. PREGABALINE [Concomitant]
     Active Substance: PREGABALIN
     Dosage: UNK
  7. LAROXYL [Concomitant]
     Active Substance: AMITRIPTYLINE HYDROCHLORIDE
     Dosage: UNK
  8. COLCHICINE. [Concomitant]
     Active Substance: COLCHICINE
     Dosage: UNK
  9. SOLU?MEDROL [Concomitant]
     Active Substance: METHYLPREDNISOLONE SODIUM SUCCINATE
     Dosage: UNK
  10. VERSATIS [Concomitant]
     Active Substance: LIDOCAINE
     Dosage: UNK
  11. INNOHEP [Concomitant]
     Active Substance: TINZAPARIN SODIUM
     Dosage: UNK
  12. CORDARONE [Concomitant]
     Active Substance: AMIODARONE HYDROCHLORIDE
     Dosage: UNK
  13. KEYTRUDA [Suspect]
     Active Substance: PEMBROLIZUMAB
     Indication: BRONCHIAL CARCINOMA
     Dosage: 200 MCI, CYCLIC
     Route: 041
     Dates: start: 20200629, end: 20200629

REACTIONS (2)
  - Rash [Not Recovered/Not Resolved]
  - Lip ulceration [Not Recovered/Not Resolved]

NARRATIVE: CASE EVENT DATE: 20200707
